FAERS Safety Report 8341400-7 (Version None)
Quarter: 2012Q2

REPORT INFORMATION
  Report Type: 
  Country: None (occurrence: None)
  Receive Date: 20120507
  Receipt Date: 20120502
  Transmission Date: 20120825
  Serious: Yes (Hospitalization)
  Sender: FDA-Public Use
  Company Number: JP-PFIZER INC-2012110058

PATIENT
  Age: 40 Year
  Sex: Male

DRUGS (1)
  1. ZOLOFT [Suspect]
     Dosage: 75 MG DAILY
     Route: 048

REACTIONS (1)
  - VIITH NERVE PARALYSIS [None]
